FAERS Safety Report 10729470 (Version 1)
Quarter: 2015Q1

REPORT INFORMATION
  Report Type: Spontaneous
  Country: US (occurrence: None)
  Receive Date: 20150121
  Receipt Date: 20150121
  Transmission Date: 20150721
  Serious: Yes (Other)
  Sender: FDA-Public Use
  Company Number: None

PATIENT
  Age: 42 Year
  Sex: Female
  Weight: 114.31 kg

DRUGS (20)
  1. LORATADINE. [Concomitant]
     Active Substance: LORATADINE
  2. VENLAFAXINE [Suspect]
     Active Substance: VENLAFAXINE HYDROCHLORIDE
     Indication: ANXIETY
     Dosage: 1 CAPSULE X 7 DAYS
     Dates: start: 20140908
  3. VENLAFAXINE [Suspect]
     Active Substance: VENLAFAXINE HYDROCHLORIDE
     Indication: ANXIETY
     Dosage: 1 CAPSULE DAILY
     Dates: start: 20141006
  4. VENLAFAXINE [Suspect]
     Active Substance: VENLAFAXINE HYDROCHLORIDE
     Indication: ANXIETY
     Dosage: 1 CAPSULE DAILY
     Dates: start: 20141110
  5. VENLAFAXINE [Suspect]
     Active Substance: VENLAFAXINE HYDROCHLORIDE
     Indication: DEPRESSION
     Dosage: 1 CAPSULE DAILY
     Dates: start: 20141110
  6. LAMOTRIGINE. [Suspect]
     Active Substance: LAMOTRIGINE
     Dates: start: 20141210
  7. VENLAFAXINE [Suspect]
     Active Substance: VENLAFAXINE HYDROCHLORIDE
     Dosage: 1 CAPSULE ONCE A DAY
     Dates: start: 20141216
  8. TRIAMCINOLON [Concomitant]
     Dates: start: 20150105
  9. VENLAFAXINE [Suspect]
     Active Substance: VENLAFAXINE HYDROCHLORIDE
     Indication: DEPRESSION
     Dosage: 1 CAPSULE DAILY
     Dates: start: 20141006
  10. OXYBUTYNIN [Suspect]
     Active Substance: OXYBUTYNIN
     Dosage: 1 TABLET DAILY
     Dates: start: 20141110, end: 20141223
  11. DIPHENHYDRAMINE [Concomitant]
     Active Substance: DIPHENHYDRAMINE
  12. DIFFERIN [Suspect]
     Active Substance: ADAPALENE
     Dates: start: 20141114
  13. PROCTOSOL-HC [Suspect]
     Active Substance: HYDROCORTISONE
     Dates: start: 20141114
  14. VENLAFAXINE [Suspect]
     Active Substance: VENLAFAXINE HYDROCHLORIDE
     Indication: ANXIETY
     Dosage: 1 CAPSULE DAILY
     Dates: start: 20141201, end: 20141208
  15. ALEVE [Concomitant]
     Active Substance: NAPROXEN SODIUM
  16. VENLAFAXINE [Suspect]
     Active Substance: VENLAFAXINE HYDROCHLORIDE
     Indication: DEPRESSION
     Dosage: 1 CAPSULE DAILY
     Dates: start: 20141201, end: 20141208
  17. ASPIRIN. [Concomitant]
     Active Substance: ASPIRIN
  18. ONDANSETRON [Suspect]
     Active Substance: ONDANSETRON
     Indication: NAUSEA
     Dates: start: 20141208
  19. VENLAFAXINE [Suspect]
     Active Substance: VENLAFAXINE HYDROCHLORIDE
     Indication: DEPRESSION
     Dosage: 1 CAPSULE X 7 DAYS
     Dates: start: 20140908
  20. KETOCONAZOLE. [Suspect]
     Active Substance: KETOCONAZOLE
     Dates: start: 20141208

REACTIONS (5)
  - Haemorrhage [None]
  - Thinking abnormal [None]
  - Vision blurred [None]
  - Rash [None]
  - Burning sensation [None]

NARRATIVE: CASE EVENT DATE: 20141014
